FAERS Safety Report 10221115 (Version 2)
Quarter: 2015Q1

REPORT INFORMATION
  Report Type: Spontaneous
  Country: US (occurrence: None)
  Receive Date: 20140604
  Receipt Date: 20150303
  Transmission Date: 20150720
  Serious: Yes (Other)
  Sender: FDA-Public Use
  Company Number: 201405120

PATIENT
  Age: 58 Year
  Sex: Male
  Weight: 99.79 kg

DRUGS (4)
  1. TESTIM [Suspect]
     Active Substance: TESTOSTERONE
     Indication: ERECTILE DYSFUNCTION
     Dates: start: 201105, end: 201402
  2. TESTIM [Suspect]
     Active Substance: TESTOSTERONE
     Indication: BLOOD TESTOSTERONE DECREASED
     Dates: start: 201105, end: 201402
  3. AMLODIPINE [Concomitant]
     Active Substance: AMLODIPINE BESYLATE
  4. TESTIM [Suspect]
     Active Substance: TESTOSTERONE
     Dates: start: 201105, end: 201402

REACTIONS (12)
  - Cerebrovascular accident [None]
  - Thrombosis [None]
  - Anhedonia [None]
  - Cardiovascular disorder [None]
  - Unevaluable event [None]
  - Pain [None]
  - Fear of disease [None]
  - Pulmonary embolism [None]
  - Multiple injuries [None]
  - Economic problem [None]
  - Myocardial infarction [None]
  - Anxiety [None]

NARRATIVE: CASE EVENT DATE: 20120524
